FAERS Safety Report 9754458 (Version 3)
Quarter: 2014Q1

REPORT INFORMATION
  Report Type: Spontaneous
  Country: IN (occurrence: None)
  Receive Date: 20131211
  Receipt Date: 20140117
  Transmission Date: 20141002
  Serious: Yes (Death)
  Sender: FDA-Public Use
  Company Number: 2013CP000148

PATIENT
  Sex: Male

DRUGS (1)
  1. PERFALGAN [Suspect]
     Indication: PROCEDURAL PAIN
     Route: 042
     Dates: start: 20131124, end: 20131126

REACTIONS (2)
  - Death [None]
  - Hepatic failure [None]
